FAERS Safety Report 7828818-3 (Version None)
Quarter: 2011Q4

REPORT INFORMATION
  Report Type: 
  Country: None (occurrence: None)
  Receive Date: 20111020
  Receipt Date: 20110926
  Transmission Date: 20120403
  Serious: Yes (Hospitalization)
  Sender: FDA-Public Use
  Company Number: IT-BAYER-2011-090932

PATIENT
  Age: 69 Year
  Sex: Male

DRUGS (9)
  1. ASPIRIN [Suspect]
     Indication: PLATELET AGGREGATION INHIBITION
     Dosage: 100 MG, QD
     Route: 048
     Dates: start: 20000801, end: 20110831
  2. NAPROXEN SODIUM [Suspect]
     Indication: EXERTIONAL HEADACHE
     Dosage: DAILY DOSE 400 MG
     Route: 048
     Dates: start: 20110829, end: 20110830
  3. ENALAPRIL MALEATE [Concomitant]
     Dosage: DAILY DOSE 20 MG
     Route: 048
     Dates: start: 20050801, end: 20110830
  4. CARDIOVASC [Concomitant]
     Dosage: DAILY DOSE 20 MG
     Route: 048
     Dates: start: 20040801, end: 20110830
  5. HYDROCHLOROTHIAZIDE W/ OLMESARTAN MEDOXOMIL [Concomitant]
     Dosage: UNK
     Route: 048
     Dates: start: 20040801, end: 20110830
  6. OMEPRAZOLE [Concomitant]
     Dosage: DAILY DOSE 20 MG
     Route: 048
     Dates: start: 20050801, end: 20110830
  7. VIVIN-C [ACETYLSALICYLIC ACID,ASCORBIC ACID] [Suspect]
     Indication: MALAISE
     Dosage: DAILY DOSE 530 MG
     Route: 048
     Dates: start: 20110826, end: 20110828
  8. OMEPRAZOLE [Concomitant]
     Dosage: 80 MG, ONCE
     Route: 042
  9. METFORAL [Concomitant]
     Dosage: DAILY DOSE 500 MG
     Route: 048
     Dates: start: 20070801, end: 20110830

REACTIONS (2)
  - MELAENA [None]
  - PEPTIC ULCER [None]
